FAERS Safety Report 8094172-8 (Version None)
Quarter: 2012Q1

REPORT INFORMATION
  Report Type: 
  Country: None (occurrence: None)
  Receive Date: 20120130
  Receipt Date: 20120130
  Transmission Date: 20120608
  Serious: Yes (Other)
  Sender: FDA-Public Use
  Company Number: None

PATIENT
  Sex: Female
  Weight: 51.709 kg

DRUGS (1)
  1. BOTOX [Suspect]
     Indication: SKIN COSMETIC PROCEDURE
     Dosage: 25 UNITS
     Dates: start: 20111206, end: 20111206

REACTIONS (3)
  - DRY EYE [None]
  - SKIN WRINKLING [None]
  - OFF LABEL USE [None]
